FAERS Safety Report 11287956 (Version 1)
Quarter: 2015Q3

REPORT INFORMATION
  Report Type: Spontaneous
  Country: TR (occurrence: TR)
  Receive Date: 20150721
  Receipt Date: 20150721
  Transmission Date: 20151125
  Serious: Yes (Hospitalization, Other)
  Sender: FDA-Public Use
  Company Number: TR-BANPHARM-20154054

PATIENT
  Age: 24 Year
  Sex: Female

DRUGS (2)
  1. PROGESTERONE UNKNOWN PRODUCT [Suspect]
     Active Substance: PROGESTERONE
  2. PROGESTERONE UNKNOWN PRODUCT [Suspect]
     Active Substance: PROGESTERONE
     Route: 023

REACTIONS (2)
  - Rash [Not Recovered/Not Resolved]
  - Autoimmune dermatitis [Recovered/Resolved]
